FAERS Safety Report 4761592-6 (Version None)
Quarter: 2005Q3

REPORT INFORMATION
  Report Type: 
  Country: None (occurrence: None)
  Receive Date: 20050906
  Receipt Date: 20050816
  Transmission Date: 20060218
  Serious: Yes (Other)
  Sender: FDA-Public Use
  Company Number: PHEH2005US09105

PATIENT
  Age: 66 Year
  Sex: Male
  Weight: 54 kg

DRUGS (5)
  1. ZELNORM [Suspect]
     Indication: IMPAIRED GASTRIC EMPTYING
     Dosage: 6 MG, BID
     Route: 048
     Dates: start: 20050420, end: 20050825
  2. PROTONIX [Concomitant]
     Indication: BARRETT'S OESOPHAGUS
     Dosage: 40 UNK, UNK
     Dates: start: 20040401
  3. MAGNESIUM [Concomitant]
     Indication: PANCREATIC CARCINOMA
     Dosage: 250 MG, UNK
     Dates: start: 20021001
  4. WARFARIN [Concomitant]
     Indication: THROMBOSIS
     Dosage: 2 MG, UNK
     Dates: start: 20021001
  5. PANGESTYME UL [Concomitant]
     Indication: DYSPEPSIA
     Dates: start: 20021001

REACTIONS (9)
  - ABDOMINAL DISTENSION [None]
  - ABDOMINAL PAIN [None]
  - ABNORMAL FAECES [None]
  - ANOREXIA [None]
  - DEHYDRATION [None]
  - DRUG INEFFECTIVE [None]
  - FREQUENT BOWEL MOVEMENTS [None]
  - HAEMATOCHEZIA [None]
  - NAUSEA [None]
